FAERS Safety Report 18672014 (Version 1)
Quarter: 2020Q4

REPORT INFORMATION
  Report Type: Spontaneous
  Country: US (occurrence: US)
  Receive Date: 20201228
  Receipt Date: 20201228
  Transmission Date: 20210114
  Serious: Yes (Death, Other)
  Sender: FDA-Public Use
  Company Number: US-COLLEGIUM PHARMACEUTICAL, INC.-2020CGM01102

PATIENT
  Age: 26 Year
  Sex: Male

DRUGS (18)
  1. NUCYNTA [Suspect]
     Active Substance: TAPENTADOL HYDROCHLORIDE
     Dosage: 100 MG, EVERY 6-8 HOURS AS NEEDED (90 MME/DAY)
     Dates: start: 20170718, end: 20180708
  2. FENTANYL. [Suspect]
     Active Substance: FENTANYL
  3. XYLAZINE [Suspect]
     Active Substance: XYLAZINE
  4. TIZANIDINE. [Concomitant]
     Active Substance: TIZANIDINE
     Dosage: 4 MG, 3X/DAY (EVERY 8 HOURS) AS NEEDED
  5. NUCYNTA [Suspect]
     Active Substance: TAPENTADOL HYDROCHLORIDE
     Dosage: AS NEEDED
  6. KETOROLAC [Concomitant]
     Active Substance: KETOROLAC TROMETHAMINE
     Dosage: UNK
     Dates: start: 20170808
  7. ZOHYDRO [Concomitant]
     Active Substance: HYDROCODONE BITARTRATE
     Dosage: 20 MG, 2X/DAY (EVERY 12 HOURS)
     Dates: start: 20180809
  8. NUCYNTA [Suspect]
     Active Substance: TAPENTADOL HYDROCHLORIDE
     Indication: BACK PAIN
     Dosage: 75 MG, 3X/DAY (EVERY 8 HOURS) AS NEEDED (90 MME/DAY)
     Dates: start: 20160315, end: 201609
  9. NUCYNTA [Suspect]
     Active Substance: TAPENTADOL HYDROCHLORIDE
     Dosage: 75 MG, 3X/DAY (EVERY 8 HOURS) AS NEEDED (90 MME/DAY)
     Dates: start: 201611, end: 20170329
  10. DIAZEPAM. [Suspect]
     Active Substance: DIAZEPAM
  11. NUCYNTA [Suspect]
     Active Substance: TAPENTADOL HYDROCHLORIDE
     Dosage: UNK, 3X/DAY
     Route: 048
  12. NUCYNTA [Suspect]
     Active Substance: TAPENTADOL HYDROCHLORIDE
     Dosage: 100 MG, 3X/DAY (EVERY 8 HOURS) AS NEEDED (90 MME/DAY)
     Dates: start: 20170330, end: 2017
  13. NUCYNTA [Suspect]
     Active Substance: TAPENTADOL HYDROCHLORIDE
     Dosage: 75 MG, 3X/DAY (EVERY 8 HOURS) AS NEEDED (90 MME/DAY)
     Dates: start: 2017, end: 20170627
  14. HEROIN [Suspect]
     Active Substance: DIAMORPHINE
  15. TRAMADOL HCL [Concomitant]
     Active Substance: TRAMADOL HYDROCHLORIDE
     Dosage: 50 MG, 3X/DAY
     Dates: start: 20181211
  16. NUCYNTA [Suspect]
     Active Substance: TAPENTADOL HYDROCHLORIDE
     Dosage: 100 MG, 3X/DAY (EVERY 8 HOURS) AS NEEDED (90 MME/DAY)
     Dates: start: 20170628, end: 20170717
  17. NUCYNTA [Suspect]
     Active Substance: TAPENTADOL HYDROCHLORIDE
     Dosage: 100 MG, 4X/DAY
     Dates: start: 20180709
  18. TRAMADOL HCL [Concomitant]
     Active Substance: TRAMADOL HYDROCHLORIDE
     Dosage: 50 MG
     Dates: start: 20171122

REACTIONS (18)
  - Accidental overdose [Fatal]
  - Mental status changes [Unknown]
  - Neuralgia [Unknown]
  - Gastroenteritis [Unknown]
  - Intervertebral disc degeneration [Unknown]
  - Weight decreased [Unknown]
  - Emotional distress [Unknown]
  - Muscle tightness [Unknown]
  - Drug use disorder [Fatal]
  - Anxiety [Unknown]
  - Withdrawal syndrome [Not Recovered/Not Resolved]
  - Epilepsy [Not Recovered/Not Resolved]
  - Intervertebral disc protrusion [Unknown]
  - Drug dependence [Fatal]
  - Muscular weakness [Unknown]
  - Drug tolerance [Not Recovered/Not Resolved]
  - Injury [Unknown]
  - Drug ineffective for unapproved indication [Not Recovered/Not Resolved]

NARRATIVE: CASE EVENT DATE: 2016
